FAERS Safety Report 5303546-7 (Version None)
Quarter: 2007Q2

REPORT INFORMATION
  Report Type: 
  Country: None (occurrence: None)
  Receive Date: 20070420
  Receipt Date: 20070411
  Transmission Date: 20071010
  Serious: Yes (Other)
  Sender: FDA-Public Use
  Company Number: GB-PFIZER INC-2007029576

PATIENT
  Age: 79 Year
  Sex: Male
  Weight: 100 kg

DRUGS (11)
  1. MINOXIDIL [Suspect]
     Indication: HYPERTENSION
     Route: 048
  2. ACETYLSALICYLIC ACID SRT [Concomitant]
  3. BISOPRODOL FUMARATE [Concomitant]
  4. BUMETANIDE [Concomitant]
  5. CLOPIDOGREL [Concomitant]
  6. DILTIAZEM [Concomitant]
  7. GLICLAZIDE [Concomitant]
  8. GTN-S [Concomitant]
  9. LISINOPRIL [Concomitant]
  10. METFORMIN HCL [Concomitant]
  11. OMEPRAZOLE [Concomitant]

REACTIONS (1)
  - PERICARDIAL EFFUSION [None]
